FAERS Safety Report 6251801-9 (Version None)
Quarter: 2009Q2

REPORT INFORMATION
  Report Type: 
  Country: None (occurrence: None)
  Receive Date: 20090630
  Receipt Date: 20090619
  Transmission Date: 20091009
  Serious: Yes (Hospitalization, Disabling, Other)
  Sender: FDA-Public Use
  Company Number: JP-PFIZER INC-2009199045

PATIENT
  Age: 77 Year

DRUGS (19)
  1. LIPITOR [Suspect]
     Indication: DYSLIPIDAEMIA
     Dosage: 5 MG,UID/ 1X/DAY
     Route: 048
     Dates: start: 20080702, end: 20090301
  2. VEGETAMIN B [Suspect]
     Indication: INSOMNIA
     Dosage: 1 DF,UID/ 1X/DAY
     Route: 048
     Dates: start: 20090304, end: 20090309
  3. ARICEPT [Concomitant]
     Dosage: UNK
     Dates: start: 20080319, end: 20090301
  4. VALSARTAN [Concomitant]
     Dosage: UNK
     Dates: start: 20080123
  5. ASPIRIN [Concomitant]
     Dosage: UNK
     Dates: start: 20070509
  6. ALMYLAR [Concomitant]
     Dosage: UNK
     Dates: start: 20080604, end: 20090301
  7. FAMOTIDINE [Concomitant]
     Dosage: UNK
     Dates: start: 20070509, end: 20090301
  8. ZYLORIC [Concomitant]
     Dosage: UNK
     Dates: start: 20070509, end: 20090301
  9. DIART [Concomitant]
     Dosage: UNK
     Dates: start: 20070509, end: 20090301
  10. TETRAMIDE [Concomitant]
     Dosage: UNK
     Dates: start: 20090121, end: 20090301
  11. AMOBAN [Concomitant]
     Dosage: UNK
     Dates: start: 20090121, end: 20090301
  12. BROTIZOLAM [Concomitant]
     Dosage: UNK
     Dates: start: 20090101, end: 20090301
  13. ALOSENN [Concomitant]
     Dosage: UNK
     Dates: start: 20040401, end: 20090301
  14. AMLODIPINE [Concomitant]
     Dosage: UNK
     Dates: start: 20080914, end: 20090301
  15. SELENICA-R [Concomitant]
     Dosage: UNK
     Dates: start: 20090107, end: 20090301
  16. CILOSTAZOL [Concomitant]
     Dosage: UNK
     Dates: start: 20070509
  17. PERSELIN [Concomitant]
     Dosage: UNK
     Dates: start: 20070801, end: 20090301
  18. SIGMART [Concomitant]
     Dosage: UNK
     Dates: start: 20040509
  19. URIEF [Concomitant]
     Dosage: UNK
     Dates: start: 20070801, end: 20090301

REACTIONS (1)
  - AGRANULOCYTOSIS [None]
